FAERS Safety Report 4606525-8 (Version None)
Quarter: 2005Q2

REPORT INFORMATION
  Report Type: 
  Country: None (occurrence: None)
  Receive Date: 20050223
  Receipt Date: 20040930
  Transmission Date: 20051028
  Serious: Yes (Life-Threatening)
  Sender: FDA-Public Use
  Company Number: WAES0410USA00069

PATIENT
  Sex: Female

DRUGS (2)
  1. ZOCOR [Suspect]
     Indication: BLOOD CHOLESTEROL INCREASED
     Dosage: PO
     Route: 048
  2. THERAPY UNSPECIFIED [Concomitant]

REACTIONS (4)
  - CONSTIPATION [None]
  - MUSCLE SPASMS [None]
  - PARAESTHESIA [None]
  - VERTIGO [None]
